FAERS Safety Report 21028647 (Version 1)
Quarter: 2022Q2

REPORT INFORMATION
  Report Type: Other
  Country: US (occurrence: None)
  Receive Date: 20220630
  Receipt Date: 20220630
  Transmission Date: 20220721
  Serious: Yes (Other)
  Sender: FDA-Public Use
  Company Number: US-ROCHE-3120944

PATIENT
  Sex: Female

DRUGS (16)
  1. CELLCEPT [Suspect]
     Active Substance: MYCOPHENOLATE MOFETIL
     Indication: Overlap syndrome
     Route: 048
  2. PROVENTIL [Concomitant]
     Active Substance: ALBUTEROL
  3. XANAX [Concomitant]
     Active Substance: ALPRAZOLAM
  4. NORVASC [Concomitant]
     Active Substance: AMLODIPINE BESYLATE
  5. PULMICORT TURBUHALER [Concomitant]
     Active Substance: BUDESONIDE
  6. VIBRA-TABS [Concomitant]
     Active Substance: DOXYCYCLINE HYCLATE
  7. EVOLOCUMAB [Concomitant]
     Active Substance: EVOLOCUMAB
  8. FLONASE [Concomitant]
     Active Substance: FLUTICASONE PROPIONATE
  9. APRESOLINE HYDROCHLORIDE [Concomitant]
     Active Substance: HYDRALAZINE HYDROCHLORIDE
  10. TRESIBA [Concomitant]
     Active Substance: INSULIN DEGLUDEC
  11. SOOLANTRA [Concomitant]
     Active Substance: IVERMECTIN
  12. MAGIC MOUTH WASH [ALUMINIUM HYDROXIDE;DIPHENHYDRAMINE;LIDOCAINE;MAGNES [Concomitant]
  13. PRILOSEC [Concomitant]
     Active Substance: OMEPRAZOLE MAGNESIUM
  14. ZOFRAN [Concomitant]
     Active Substance: ONDANSETRON HYDROCHLORIDE
  15. PHENERGAN [Concomitant]
     Active Substance: PROMETHAZINE HYDROCHLORIDE
  16. MAXZIDE [Concomitant]
     Active Substance: HYDROCHLOROTHIAZIDE\TRIAMTERENE

REACTIONS (2)
  - Off label use [Unknown]
  - Diabetes mellitus [Unknown]
